FAERS Safety Report 19689262 (Version 1)
Quarter: 2021Q3

REPORT INFORMATION
  Report Type: Spontaneous
  Country: JP (occurrence: JP)
  Receive Date: 20210812
  Receipt Date: 20210812
  Transmission Date: 20211014
  Serious: Yes (Other)
  Sender: FDA-Public Use
  Company Number: JP-LUPIN PHARMACEUTICALS INC.-2021-14355

PATIENT
  Age: 65 Year
  Sex: Male

DRUGS (4)
  1. OXYCODONE [Suspect]
     Active Substance: OXYCODONE
     Indication: CANCER PAIN
     Dosage: UNK (STOPPED AFTER VISIT TO THE PALLIATIVE CARE; RESTARTED AFTER RESOLUTION OF DELIRIUM)
     Route: 048
  2. METHADONE [Interacting]
     Active Substance: METHADONE HYDROCHLORIDE
     Indication: CANCER PAIN
     Dosage: 5 MILLIGRAM (AFTER THE OXYCODONE DOSE REACHED 120 MG/DAY, METHADONE 5MG WAS ADDED)
     Route: 051
  3. OXYCODONE [Interacting]
     Active Substance: OXYCODONE
     Dosage: 120 MILLIGRAM (STARTED AT AN UNKNOWN DOSE AFTER THE INITIAL VISIT TO THE PALLIATIVE CARE; METHADONE
     Route: 042
  4. OXYCODONE [Interacting]
     Active Substance: OXYCODONE
     Dosage: UNK
     Route: 048

REACTIONS (4)
  - Drug tolerance increased [Unknown]
  - Accidental overdose [Unknown]
  - Drug interaction [Unknown]
  - Delirium [Recovered/Resolved]
